APPROVED DRUG PRODUCT: CYTARABINE
Active Ingredient: CYTARABINE
Strength: 100MG/VIAL
Dosage Form/Route: INJECTABLE;INJECTION
Application: A071471 | Product #001 | TE Code: AP
Applicant: HIKMA PHARMACEUTICALS USA INC
Approved: Aug 2, 1989 | RLD: No | RS: No | Type: RX